FAERS Safety Report 5081193-2 (Version None)
Quarter: 2006Q3

REPORT INFORMATION
  Report Type: 
  Country: None (occurrence: None)
  Receive Date: 20060810
  Receipt Date: 20060803
  Transmission Date: 20061208
  Serious: Yes (Hospitalization)
  Sender: FDA-Public Use
  Company Number: 145057USA

PATIENT
  Age: 48 Year
  Sex: Female

DRUGS (3)
  1. COPAXONE [Suspect]
     Indication: MULTIPLE SCLEROSIS
     Dates: start: 20021201
  2. WELLBUTRIN [Concomitant]
  3. KLONOPIN [Concomitant]

REACTIONS (7)
  - ABDOMINAL DISTENSION [None]
  - ABDOMINAL PAIN [None]
  - ABDOMINOPLASTY [None]
  - BURSA DISORDER [None]
  - INJECTION SITE ATROPHY [None]
  - INJECTION SITE REACTION [None]
  - POST PROCEDURAL COMPLICATION [None]
